FAERS Safety Report 5799652-3 (Version None)
Quarter: 2008Q3

REPORT INFORMATION
  Report Type: 
  Country: None (occurrence: None)
  Receive Date: 20080703
  Receipt Date: 20080701
  Transmission Date: 20090109
  Serious: Yes (Hospitalization)
  Sender: FDA-Public Use
  Company Number: JP-SP-2008-01045

PATIENT
  Age: 81 Year
  Sex: Male

DRUGS (6)
  1. IMMUCYST [Suspect]
     Indication: BLADDER CANCER
     Route: 043
     Dates: start: 20080110, end: 20080228
  2. SILODOSIN [Concomitant]
  3. PIPSISSEWA EXTRACT JAPANESE ASPEN EXTRACT COMBINED DRUG [Concomitant]
  4. ADENOSINE TRIPHOSPHATE DISODIUM [Concomitant]
  5. MECOBALAMIN [Concomitant]
  6. LANSOPRAZOLE [Concomitant]

REACTIONS (1)
  - REITER'S SYNDROME [None]
